FAERS Safety Report 8191069-X (Version None)
Quarter: 2012Q1

REPORT INFORMATION
  Report Type: 
  Country: None (occurrence: None)
  Receive Date: 20120307
  Receipt Date: 20120301
  Transmission Date: 20120608
  Serious: Yes (Hospitalization)
  Sender: FDA-Public Use
  Company Number: US-GLAXOSMITHKLINE-A0898934A

PATIENT
  Age: 56 Year
  Sex: Male

DRUGS (5)
  1. LOTENSIN [Concomitant]
  2. XOPENEX [Concomitant]
  3. DIABETA [Concomitant]
  4. ADVAIR DISKUS 100/50 [Concomitant]
  5. AVANDIA [Suspect]
     Indication: TYPE 2 DIABETES MELLITUS
     Dosage: 4MG PER DAY
     Route: 048
     Dates: start: 20060401, end: 20070101

REACTIONS (2)
  - MYOCARDIAL INFARCTION [None]
  - CORONARY ARTERY OCCLUSION [None]
